FAERS Safety Report 6754420-0 (Version None)
Quarter: 2010Q2

REPORT INFORMATION
  Report Type: 
  Country: None (occurrence: None)
  Receive Date: 20100603
  Receipt Date: 20100527
  Transmission Date: 20101027
  Serious: Yes (Hospitalization, Other)
  Sender: FDA-Public Use
  Company Number: US-BAYER-201016115BCC

PATIENT
  Age: 15 Year
  Sex: Female
  Weight: 57 kg

DRUGS (1)
  1. MIDOL [Suspect]
     Indication: DRUG USE FOR UNKNOWN INDICATION
     Dosage: UNIT DOSE: 1 DF
     Route: 048
     Dates: start: 20100527

REACTIONS (4)
  - DYSARTHRIA [None]
  - MYDRIASIS [None]
  - PUPIL FIXED [None]
  - SPEECH DISORDER [None]
